FAERS Safety Report 7629653-1 (Version None)
Quarter: 2011Q3

REPORT INFORMATION
  Report Type: 
  Country: None (occurrence: None)
  Receive Date: 20110722
  Receipt Date: 20110713
  Transmission Date: 20111222
  Serious: Yes (Other)
  Sender: FDA-Public Use
  Company Number: US-JNJFOC-20110706836

PATIENT
  Age: 75 Year
  Sex: Female
  Weight: 53.07 kg

DRUGS (6)
  1. CARVEDILOL [Concomitant]
     Indication: HYPERTENSION
     Route: 065
  2. EXTRA STRENGTH TYLENOL PM RAPID RELEASE [Suspect]
     Indication: INSOMNIA
     Route: 048
     Dates: start: 20110712, end: 20110712
  3. SIMVASTATIN [Concomitant]
     Indication: BLOOD CHOLESTEROL INCREASED
     Route: 065
  4. ENALAPRIL MALEATE [Concomitant]
     Indication: HYPERTENSION
     Route: 065
  5. ASPIRIN [Concomitant]
     Indication: CARDIAC DISORDER
     Route: 065
  6. INSULIN [Concomitant]
     Indication: DIABETES MELLITUS
     Dosage: 15-20 UI/DAY
     Route: 065

REACTIONS (1)
  - BLOOD GLUCOSE INCREASED [None]
